FAERS Safety Report 24577013 (Version 3)
Quarter: 2025Q3

REPORT INFORMATION
  Report Type: Spontaneous
  Country: EU (occurrence: EU)
  Receive Date: 20241104
  Receipt Date: 20250715
  Transmission Date: 20251020
  Serious: Yes (Death, Other)
  Sender: MERCK SHARP & DOHME LLC
  Company Number: EU-009507513-2410FRA013163

PATIENT
  Age: 55 Year
  Sex: Male

DRUGS (1)
  1. PEMBROLIZUMAB [Suspect]
     Active Substance: PEMBROLIZUMAB
     Indication: Angiocentric lymphoma
     Route: 065

REACTIONS (6)
  - Status epilepticus [Fatal]
  - Neurotoxicity [Fatal]
  - Hypophysitis [Fatal]
  - Hyponatraemia [Fatal]
  - Hypoglycaemia [Fatal]
  - Product use in unapproved indication [Unknown]
